FAERS Safety Report 7059978 (Version 13)
Quarter: 2015Q1

REPORT INFORMATION
  Report Type: Report from Study
  Country: CA (occurrence: CA)
  Receive Date: 20090723
  Receipt Date: 20150313
  Transmission Date: 20150721
  Serious: Yes (Hospitalization, Other)
  Sender: FDA-Public Use
  Company Number: PHHY2009CA29891

PATIENT
  Age: 45 Year
  Sex: Female

DRUGS (3)
  1. SANDOSTATIN [Suspect]
     Active Substance: OCTREOTIDE ACETATE
     Indication: ACROMEGALY
     Dosage: 50 UG, BID
     Route: 058
     Dates: start: 20090707
  2. SANDOSTATIN LAR DEPOT [Suspect]
     Active Substance: OCTREOTIDE ACETATE
     Indication: ACROMEGALY
     Dosage: 20 MG, QMO
     Route: 030
     Dates: start: 20090724
  3. SANDOSTATIN LAR DEPOT [Suspect]
     Active Substance: OCTREOTIDE ACETATE
     Dosage: 30 MG, ONCE A MONTH
     Route: 030

REACTIONS (13)
  - Tooth abscess [Unknown]
  - Arthralgia [Recovering/Resolving]
  - Bronchitis [Unknown]
  - Abdominal pain [Unknown]
  - Fatigue [Unknown]
  - Influenza [Recovering/Resolving]
  - Cholelithiasis [Unknown]
  - Asthma [Unknown]
  - Insomnia [Unknown]
  - Diarrhoea [Unknown]
  - Tachycardia [Unknown]
  - Pain in extremity [Recovering/Resolving]
  - Malaise [Unknown]

NARRATIVE: CASE EVENT DATE: 20140713
